FAERS Safety Report 19469562 (Version 1)
Quarter: 2021Q2

REPORT INFORMATION
  Report Type: Spontaneous
  Country: GB (occurrence: GB)
  Receive Date: 20210628
  Receipt Date: 20210628
  Transmission Date: 20210717
  Serious: Yes (Other)
  Sender: FDA-Public Use
  Company Number: GB-MYLANLABS-2021M1037894

PATIENT
  Age: 79 Year
  Sex: Female
  Weight: 111 kg

DRUGS (17)
  1. ATENOLOL. [Concomitant]
     Active Substance: ATENOLOL
     Dosage: 1 DOSAGE FORM, AM (EACH MORNING)
     Dates: start: 20200818
  2. CLARITHROMYCIN. [Suspect]
     Active Substance: CLARITHROMYCIN
     Indication: PRODUCT USED FOR UNKNOWN INDICATION
     Dosage: 250 MILLIGRAM, BID
     Route: 048
     Dates: start: 20210602
  3. DOXYCYCLINE. [Concomitant]
     Active Substance: DOXYCYCLINE
     Dosage: TWO NOW THEN ONE DAILY
     Dates: start: 20210603, end: 20210610
  4. FUROSEMIDE. [Concomitant]
     Active Substance: FUROSEMIDE
     Dosage: 1 DOSAGE FORM, AM (EACH MORNING   )
     Route: 048
     Dates: start: 20210323, end: 20210420
  5. METFORMIN [Concomitant]
     Active Substance: METFORMIN HYDROCHLORIDE
     Dosage: 1 DOSAGE FORM, BID
     Dates: start: 20200810
  6. MIRABEGRON [Concomitant]
     Active Substance: MIRABEGRON
     Dosage: 1 DOSAGE FORM, QD
     Dates: start: 20210308
  7. ALOGLIPTIN. [Concomitant]
     Active Substance: ALOGLIPTIN
     Dosage: EACH MORNING (NEW STRENGTH)
     Dates: start: 20200818
  8. CETRABEN                           /01690401/ [Concomitant]
     Dosage: USE AS DIRECTED
     Dates: start: 20200415
  9. FERROUS FUMARATE [Concomitant]
     Active Substance: FERROUS FUMARATE
     Dosage: WITH A SMALL GLASS OF ORANGE JU...
     Route: 048
     Dates: start: 20200929
  10. HUMULIN L [Concomitant]
     Active Substance: INSULIN HUMAN
     Dosage: USE AS DIRECTED
     Dates: start: 20200921
  11. RAMIPRIL. [Concomitant]
     Active Substance: RAMIPRIL
     Dosage: 1 DOSAGE FORM, BID
     Dates: start: 20201126
  12. SIMVASTATIN. [Concomitant]
     Active Substance: SIMVASTATIN
     Dosage: 1 DOSAGE FORM, HS (AT NIGHT   )
     Dates: start: 20200727
  13. NITROFURANTOIN. [Concomitant]
     Active Substance: NITROFURANTOIN
     Dosage: 1 DOSAGE FORM, HS (EACH NIGHT)
     Route: 048
     Dates: start: 20200921
  14. NORTRIPTYLINE [Concomitant]
     Active Substance: NORTRIPTYLINE
     Dosage: 2 DOSAGE FORM, HS (EACH NIGHT   )
     Dates: start: 20190830
  15. OMEPRAZOLE. [Concomitant]
     Active Substance: OMEPRAZOLE
     Dosage: 1 DOSAGE FORM, QD
     Dates: start: 20200727
  16. VAGIFEM [Concomitant]
     Active Substance: ESTRADIOL
     Dosage: DAILY FOR 2 WEEKS THEN TWICE WEEKLY FOR 3 MONTHS
     Dates: start: 20210114
  17. GLICLAZIDE [Concomitant]
     Active Substance: GLICLAZIDE
     Dosage: 2 DOSAGE FORM, QD
     Dates: start: 20200818

REACTIONS (3)
  - Malaise [Recovered/Resolved]
  - Paraesthesia oral [Unknown]
  - Throat irritation [Recovered/Resolved]

NARRATIVE: CASE EVENT DATE: 20210602
